FAERS Safety Report 10101303 (Version 1)
Quarter: 2014Q2

REPORT INFORMATION
  Report Type: Spontaneous
  Country: US (occurrence: US)
  Receive Date: 20140424
  Receipt Date: 20140424
  Transmission Date: 20141212
  Serious: No
  Sender: FDA-Public Use
  Company Number: US-PFIZER INC-2014110330

PATIENT
  Sex: Female

DRUGS (2)
  1. DUAVEE [Suspect]
     Indication: HOT FLUSH
     Dosage: BAZEDOXIFENE ACETATE 0.45 MG /CONJUGATED ESTROGENS 20 MG, DAILY
     Dates: start: 2014, end: 201404
  2. DUAVEE [Suspect]
     Indication: MENOPAUSAL SYMPTOMS

REACTIONS (1)
  - Drug ineffective [Unknown]
